FAERS Safety Report 4336958-9 (Version None)
Quarter: 2004Q2

REPORT INFORMATION
  Report Type: 
  Country: None (occurrence: None)
  Receive Date: 20040408
  Receipt Date: 20040330
  Transmission Date: 20050107
  Serious: Yes (Other)
  Sender: FDA-Public Use
  Company Number: 2004021847

PATIENT
  Age: 72 Year
  Sex: Male
  Weight: 88.905 kg

DRUGS (8)
  1. TIKOSYN [Suspect]
     Indication: CARDIAC FIBRILLATION
     Dosage: 500 MCG (BID), ORAL
     Route: 048
     Dates: start: 20040315
  2. METOPROLOL TARTRATE [Concomitant]
  3. POTASSIUM CHLORIDE [Concomitant]
  4. WARFARIN SODIUM [Concomitant]
  5. DOXAZOSIN MESLYLATE [Concomitant]
  6. FUROSEMIDE [Concomitant]
  7. LISINOPRIL [Concomitant]
  8. DIGOXIN [Concomitant]

REACTIONS (3)
  - BLOOD MAGNESIUM DECREASED [None]
  - CARDIAC FIBRILLATION [None]
  - GOUT [None]
